FAERS Safety Report 4815919-7 (Version None)
Quarter: 2005Q4

REPORT INFORMATION
  Report Type: 
  Country: None (occurrence: None)
  Receive Date: 20051027
  Receipt Date: 20051019
  Transmission Date: 20060501
  Serious: No
  Sender: FDA-Public Use
  Company Number: RS005467-J

PATIENT
  Age: 83 Year
  Sex: Male

DRUGS (12)
  1. RABEPRAZOLE SODIUM [Suspect]
     Indication: GASTRIC ULCER
     Dosage: SEE IMAGE
     Route: 048
     Dates: start: 20050630, end: 20050817
  2. RABEPRAZOLE SODIUM [Suspect]
     Indication: GASTRIC ULCER
     Dosage: SEE IMAGE
     Route: 048
     Dates: start: 20050818, end: 20050910
  3. LEVOFLOXACIN [Suspect]
     Indication: ENTEROCOLITIS
     Dosage: 300 MG, 1 IN 1 D, ORAL
     Route: 048
     Dates: start: 20050908, end: 20050909
  4. TS-1 (TEGAFUR) [Suspect]
     Indication: GASTRIC CANCER
     Dosage: SEE IMAGE
     Route: 048
     Dates: start: 20050721, end: 20050803
  5. TS-1 (TEGAFUR) [Suspect]
     Indication: GASTRIC CANCER
     Dosage: SEE IMAGE
     Route: 048
     Dates: start: 20050818, end: 20050907
  6. BIOFERMIN R (STREPTOCOCCUS FAECALIS) [Concomitant]
  7. HYOSCINE HBR HYT [Concomitant]
  8. NORVASC [Concomitant]
  9. DIOVAN [Concomitant]
  10. AZUCURENIN S (MARZULENE S) [Concomitant]
  11. RHYTHMY (RILMAZAFONE) [Concomitant]
  12. RYO-KEI-JUTSU-KAN-TO [Concomitant]

REACTIONS (3)
  - ANOREXIA [None]
  - DIARRHOEA [None]
  - PANCYTOPENIA [None]
